FAERS Safety Report 11643484 (Version 2)
Quarter: 2015Q4

REPORT INFORMATION
  Report Type: Spontaneous
  Country: FR (occurrence: FR)
  Receive Date: 20151020
  Receipt Date: 20151117
  Transmission Date: 20160304
  Serious: Yes (Other)
  Sender: FDA-Public Use
  Company Number: FR-ASTRAZENECA-2015SF00183

PATIENT
  Sex: Female

DRUGS (2)
  1. SYMBICORT [Suspect]
     Active Substance: BUDESONIDE\FORMOTEROL FUMARATE DIHYDRATE
     Indication: ASTHMA
     Dosage: 160/4.5 UG PER DOSE, 200MCG/6MCG UNKNOWN FREQUENCY
     Route: 055
     Dates: start: 2015, end: 2015
  2. SYMBICORT [Suspect]
     Active Substance: BUDESONIDE\FORMOTEROL FUMARATE DIHYDRATE
     Indication: ASTHMA
     Dosage: 160/4.5 UG PER DOSE; LONG LASTING TREATMENT, 200MCG/6MCG UNKNOWN FREQUENCY
     Route: 055

REACTIONS (4)
  - Product packaging quantity issue [Unknown]
  - Device malfunction [Unknown]
  - Asthmatic crisis [Recovering/Resolving]
  - Incorrect product storage [Unknown]

NARRATIVE: CASE EVENT DATE: 2015
